FAERS Safety Report 11518744 (Version 2)
Quarter: 2015Q3

REPORT INFORMATION
  Report Type: Spontaneous
  Country: DE (occurrence: DE)
  Receive Date: 20150917
  Receipt Date: 20150930
  Transmission Date: 20151125
  Serious: Yes (Congenital Anomaly, Other)
  Sender: FDA-Public Use
  Company Number: DE-BAYER-2015-423088

PATIENT
  Sex: Female
  Weight: 1.83 kg

DRUGS (12)
  1. FORMOTEROL [Suspect]
     Active Substance: FORMOTEROL
     Route: 064
  2. SULFASALAZINE. [Suspect]
     Active Substance: SULFASALAZINE
     Route: 064
  3. OMEPRAZOLE + SODIUM BICARBONATE [Suspect]
     Active Substance: OMEPRAZOLE\SODIUM BICARBONATE
     Route: 064
  4. PREDNISOLONE. [Suspect]
     Active Substance: PREDNISOLONE
     Route: 064
  5. FORMOTEROL [Suspect]
     Active Substance: FORMOTEROL
     Route: 064
  6. OMEPRAZOLE + SODIUM BICARBONATE [Suspect]
     Active Substance: OMEPRAZOLE\SODIUM BICARBONATE
     Route: 064
  7. PREDNISOLONE. [Suspect]
     Active Substance: PREDNISOLONE
     Route: 064
  8. BECLOMETHASONE [Suspect]
     Active Substance: BECLOMETHASONE
     Route: 064
  9. DICLOFENAC [Suspect]
     Active Substance: DICLOFENAC
     Route: 064
  10. DICLOFENAC [Suspect]
     Active Substance: DICLOFENAC
     Route: 064
  11. SULFASALAZINE. [Suspect]
     Active Substance: SULFASALAZINE
     Route: 064
  12. BECLOMETHASONE [Suspect]
     Active Substance: BECLOMETHASONE
     Route: 064

REACTIONS (4)
  - Premature baby [None]
  - Maternal exposure during pregnancy [None]
  - Low birth weight baby [None]
  - Talipes [None]
